FAERS Safety Report 8846297 (Version 2)
Quarter: 2012Q4

REPORT INFORMATION
  Report Type: 
  Country: US (occurrence: US)
  Receive Date: 20121018
  Receipt Date: 20121030
  Transmission Date: 20130627
  Serious: Yes (Other)
  Sender: FDA-Public Use
  Company Number: US-AMGEN-USASP2012065323

PATIENT
  Age: 59 Year
  Sex: Female

DRUGS (14)
  1. ENBREL [Suspect]
     Indication: PSORIATIC ARTHROPATHY
     Dosage: 25 mg, qwk
     Dates: start: 20040722, end: 201105
  2. AMBIEN [Concomitant]
     Dosage: 10 mg, qd
  3. BACLOFEN [Concomitant]
     Dosage: 20 mg, tid
  4. CALCIUM D                          /00944201/ [Concomitant]
     Dosage: 600- 200 mg, qd
  5. LEVOTHROID [Concomitant]
     Dosage: 112 mug, qd
  6. MULTIPLE VITAMINS [Concomitant]
     Dosage: UNK UNK, qd
  7. OMEGA 3                            /01334101/ [Concomitant]
     Dosage: 1000 mg, bid
  8. SIMVASTATIN [Concomitant]
     Dosage: 80 mg, qd
  9. SUMATRIPTAN [Concomitant]
     Dosage: 50 mg, as needed UNK
  10. TRAMADOL HCL [Concomitant]
     Dosage: 50 mg, 1every 4-6hr UNK
  11. VESICARE [Concomitant]
     Dosage: 10 mg, qd
  12. CYMBALTA [Concomitant]
     Indication: DEPRESSION
     Dosage: 60 mg, qd
  13. GABAPENTIN [Concomitant]
     Indication: PSORIATIC ARTHROPATHY
     Dosage: 800 mg, 1 every 6 hrs
  14. HYDROCODONE [Concomitant]
     Dosage: 5-500 mg, 1-2 every 4-6 hrs
     Route: 048

REACTIONS (10)
  - Weight decreased [Recovered/Resolved]
  - Road traffic accident [Recovered/Resolved]
  - Concussion [Recovered/Resolved]
  - Nausea [Recovered/Resolved]
  - Decreased appetite [Recovered/Resolved]
  - Electrocardiogram T wave abnormal [Not Recovered/Not Resolved]
  - Bunion operation [Recovered/Resolved]
  - Arthralgia [Not Recovered/Not Resolved]
  - Pain in extremity [Not Recovered/Not Resolved]
  - Nephrolithiasis [Recovered/Resolved]
